FAERS Safety Report 19138701 (Version 2)
Quarter: 2021Q2

REPORT INFORMATION
  Report Type: Report from Study
  Country: None (occurrence: ES)
  Receive Date: 20210415
  Receipt Date: 20210512
  Transmission Date: 20210717
  Serious: Yes (Hospitalization)
  Sender: FDA-Public Use
  Company Number: ES-ABBVIE-21K-144-3805611-00

PATIENT
  Age: 69 Year
  Sex: Female

DRUGS (3)
  1. IMBRUVICA [Suspect]
     Active Substance: IBRUTINIB
     Route: 048
     Dates: start: 20201201
  2. IMBRUVICA [Suspect]
     Active Substance: IBRUTINIB
     Dosage: THE IBRUTINIB DOSE WAS INCREASED FROM 1 TO 2 TABLETS.
     Route: 048
     Dates: start: 20210219
  3. IMBRUVICA [Suspect]
     Active Substance: IBRUTINIB
     Indication: CHRONIC LYMPHOCYTIC LEUKAEMIA
     Route: 048
     Dates: start: 20171123, end: 20210302

REACTIONS (8)
  - Pyrexia [Not Recovered/Not Resolved]
  - Nodule [Recovering/Resolving]
  - Malaise [Not Recovered/Not Resolved]
  - Urinary tract infection [Not Recovered/Not Resolved]
  - Lymphadenopathy [Recovering/Resolving]
  - Hypokinesia [Not Recovered/Not Resolved]
  - Diarrhoea [Not Recovered/Not Resolved]
  - Anaemia [Recovering/Resolving]

NARRATIVE: CASE EVENT DATE: 20210219
